FAERS Safety Report 8889830 (Version 1)
Quarter: 2012Q4

REPORT INFORMATION
  Report Type: 
  Country: US (occurrence: US)
  Receive Date: 20121107
  Receipt Date: 20121107
  Transmission Date: 20130627
  Serious: No
  Sender: FDA-Public Use
  Company Number: US-009507513-1210USA013768

PATIENT
  Sex: Male

DRUGS (3)
  1. VICTRELIS [Suspect]
     Indication: HEPATITIS C
     Dosage: 800 mg, tid
     Route: 048
     Dates: start: 20120724, end: 201210
  2. PEGINTRON [Suspect]
     Dosage: 120 Microgram, qw
     Route: 058
  3. RIBAPAK [Suspect]
     Dosage: 600 mg in AM and 400 mg in PM
     Route: 048

REACTIONS (3)
  - Quality of life decreased [Unknown]
  - Diabetes mellitus inadequate control [Unknown]
  - Fatigue [Unknown]
